FAERS Safety Report 15181920 (Version 2)
Quarter: 2018Q3

REPORT INFORMATION
  Report Type: Spontaneous
  Country: JP (occurrence: JP)
  Receive Date: 20180723
  Receipt Date: 20180924
  Transmission Date: 20181010
  Serious: Yes (Hospitalization, Other)
  Sender: FDA-Public Use
  Company Number: JP-GLAXOSMITHKLINE-JP2018129915

PATIENT
  Age: 87 Year
  Sex: Female
  Weight: 43 kg

DRUGS (14)
  1. WARFARIN [Suspect]
     Active Substance: WARFARIN
     Dosage: 2 MG, UNK
     Route: 048
     Dates: start: 20180523
  2. WARFARIN [Suspect]
     Active Substance: WARFARIN
     Indication: ATRIAL FIBRILLATION
     Dosage: 2 MG, QD
     Route: 048
     Dates: start: 20170827
  3. WARFARIN [Suspect]
     Active Substance: WARFARIN
     Dosage: 1.75 MG, UNK
     Route: 048
     Dates: start: 20180521, end: 20180522
  4. CARVEDILOL. [Concomitant]
     Active Substance: CARVEDILOL
     Indication: PRODUCT USED FOR UNKNOWN INDICATION
     Dosage: UNK
     Route: 048
  5. FEBURIC [Concomitant]
     Active Substance: FEBUXOSTAT
     Indication: PRODUCT USED FOR UNKNOWN INDICATION
     Dosage: UNK
     Route: 048
  6. RALOXIFENE HYDROCHLORIDE. [Concomitant]
     Active Substance: RALOXIFENE HYDROCHLORIDE
     Indication: PRODUCT USED FOR UNKNOWN INDICATION
     Dosage: UNK
     Route: 048
  7. PYDOXAL [Concomitant]
     Active Substance: PYRIDOXAL
     Indication: GLOSSODYNIA
     Dosage: UNK
     Route: 048
     Dates: start: 20180511
  8. AMLODIPINE [Concomitant]
     Active Substance: AMLODIPINE BESYLATE
     Indication: PRODUCT USED FOR UNKNOWN INDICATION
     Dosage: UNK
     Route: 048
  9. ATORVASTATIN [Concomitant]
     Active Substance: ATORVASTATIN
     Indication: PRODUCT USED FOR UNKNOWN INDICATION
     Dosage: UNK
     Route: 048
  10. VOLTAREN [Suspect]
     Active Substance: DICLOFENAC SODIUM
     Indication: GLOSSODYNIA
     Dosage: 12.5 MG, TID
     Route: 048
     Dates: start: 20180511, end: 20180516
  11. WARFARIN [Suspect]
     Active Substance: WARFARIN
     Dosage: 2 MG, UNK
     Route: 048
     Dates: start: 20180530
  12. TELMISARTAN. [Concomitant]
     Active Substance: TELMISARTAN
     Indication: PRODUCT USED FOR UNKNOWN INDICATION
     Dosage: UNK
     Route: 048
  13. WARFARIN [Suspect]
     Active Substance: WARFARIN
     Dosage: 1.5 MG, UNK
     Route: 048
     Dates: start: 20180518, end: 20180520
  14. SPIRONOLACTONE. [Concomitant]
     Active Substance: SPIRONOLACTONE
     Indication: PRODUCT USED FOR UNKNOWN INDICATION
     Dosage: UNK
     Route: 048

REACTIONS (1)
  - Upper gastrointestinal haemorrhage [Recovered/Resolved]

NARRATIVE: CASE EVENT DATE: 20180516
